FAERS Safety Report 8060169-7 (Version None)
Quarter: 2012Q1

REPORT INFORMATION
  Report Type: 
  Country: None (occurrence: None)
  Receive Date: 20120120
  Receipt Date: 20120117
  Transmission Date: 20120608
  Serious: Yes (Other)
  Sender: FDA-Public Use
  Company Number: US-PFIZER INC-2012013967

PATIENT
  Sex: Male
  Weight: 93.4 kg

DRUGS (4)
  1. ZOMIG [Suspect]
     Indication: MIGRAINE
     Dosage: UNK
  2. RELPAX [Suspect]
     Indication: MIGRAINE
     Dosage: 40 MG, 2X/DAY
     Route: 048
  3. MAXALT [Suspect]
     Indication: MIGRAINE
     Dosage: UNK
  4. IMITREX [Suspect]
     Indication: MIGRAINE
     Dosage: UNK

REACTIONS (3)
  - MULTIPLE SCLEROSIS [None]
  - DRUG INEFFECTIVE [None]
  - CHEST PAIN [None]
